FAERS Safety Report 14881059 (Version 1)
Quarter: 2018Q2

REPORT INFORMATION
  Report Type: Spontaneous
  Country: US (occurrence: US)
  Receive Date: 20180425
  Receipt Date: 20180425
  Transmission Date: 20180711
  Serious: No
  Sender: FDA-Public Use
  Company Number: None

PATIENT
  Age: 52 Year
  Sex: Female
  Weight: 87.75 kg

DRUGS (5)
  1. METHYLPREDNISOLONE 4MG TABLETS [Suspect]
     Active Substance: METHYLPREDNISOLONE
     Indication: MIGRAINE
     Dosage: ?          QUANTITY:21 TABLET(S);OTHER FREQUENCY:TAPERED OVER 6 DAY;?
     Route: 048
     Dates: start: 20180418, end: 20180423
  2. ZONISAMIDE. [Concomitant]
     Active Substance: ZONISAMIDE
  3. LEVOTHYROXINE. [Concomitant]
     Active Substance: LEVOTHYROXINE
  4. MVI [Suspect]
     Active Substance: VITAMINS
  5. CETIRIZINE [Concomitant]
     Active Substance: CETIRIZINE HYDROCHLORIDE

REACTIONS (4)
  - Hot flush [None]
  - Sluggishness [None]
  - Insomnia [None]
  - Drug ineffective [None]

NARRATIVE: CASE EVENT DATE: 20180418
